FAERS Safety Report 7604294-0 (Version None)
Quarter: 2011Q3

REPORT INFORMATION
  Report Type: 
  Country: None (occurrence: None)
  Receive Date: 20110712
  Receipt Date: 20110629
  Transmission Date: 20111222
  Serious: Yes (Other)
  Sender: FDA-Public Use
  Company Number: PHHY2011AR58493

PATIENT
  Sex: Male

DRUGS (1)
  1. TRILEPTAL [Suspect]
     Indication: EPILEPSY
     Dosage: 2 DF, DAILY
     Route: 048
     Dates: start: 20110301

REACTIONS (6)
  - SUICIDE ATTEMPT [None]
  - DAYDREAMING [None]
  - DRUG INEFFECTIVE [None]
  - FEELING ABNORMAL [None]
  - DISTURBANCE IN ATTENTION [None]
  - NERVOUS SYSTEM DISORDER [None]
